FAERS Safety Report 10376991 (Version 1)
Quarter: 2014Q3

REPORT INFORMATION
  Report Type: Spontaneous
  Country: US (occurrence: US)
  Receive Date: 20140812
  Receipt Date: 20140812
  Transmission Date: 20150326
  Serious: No
  Sender: FDA-Public Use
  Company Number: US-009507513-1408USA005093

PATIENT
  Sex: Female
  Weight: 54.88 kg

DRUGS (1)
  1. IMPLANON [Suspect]
     Active Substance: ETONOGESTREL
     Dosage: UNK
     Route: 059
     Dates: start: 201105

REACTIONS (3)
  - Incorrect drug administration duration [Unknown]
  - Medical device complication [Unknown]
  - Device difficult to use [Unknown]

NARRATIVE: CASE EVENT DATE: 20140703
